FAERS Safety Report 5248166-8 (Version None)
Quarter: 2007Q1

REPORT INFORMATION
  Report Type: 
  Country: None (occurrence: None)
  Receive Date: 20070227
  Receipt Date: 20060418
  Transmission Date: 20070707
  Serious: No
  Sender: FDA-Public Use
  Company Number: US-BRISTOL-MYERS SQUIBB COMPANY-13349691

PATIENT
  Age: 77 Year
  Sex: Female
  Weight: 81 kg

DRUGS (4)
  1. METFORMIN HCL [Suspect]
     Indication: DIABETES MELLITUS NON-INSULIN-DEPENDENT
     Dosage: DURATION OF THERAPY - YEARS
  2. ASPIRIN [Concomitant]
  3. ZYPREXA [Concomitant]
  4. LEXAPRO [Concomitant]

REACTIONS (1)
  - GAIT DISTURBANCE [None]
